FAERS Safety Report 14579151 (Version 6)
Quarter: 2018Q2

REPORT INFORMATION
  Report Type: Spontaneous
  Country: US (occurrence: US)
  Receive Date: 20180227
  Receipt Date: 20180529
  Transmission Date: 20180711
  Serious: Yes (Hospitalization, Other)
  Sender: FDA-Public Use
  Company Number: US-PFIZER INC-2018074136

PATIENT
  Age: 85 Year
  Sex: Female
  Weight: 64 kg

DRUGS (3)
  1. ATROPINE SULFATE/DIPHENOXYLATE HYDROCHLORIDE [Suspect]
     Active Substance: ATROPINE SULFATE\DIPHENOXYLATE HYDROCHLORIDE
     Indication: DIARRHOEA
     Dosage: 2 DF AS NEEDED (AFTER FIRST BOWEL MOVEMENT TAKE TWO TABLETS AND ONE TABLET AFTER THAT TAKE ONE TAB)
  2. ATROPINE SULFATE/DIPHENOXYLATE HYDROCHLORIDE [Suspect]
     Active Substance: ATROPINE SULFATE\DIPHENOXYLATE HYDROCHLORIDE
     Indication: IRRITABLE BOWEL SYNDROME
  3. ATROPINE SULFATE/DIPHENOXYLATE HYDROCHLORIDE [Suspect]
     Active Substance: ATROPINE SULFATE\DIPHENOXYLATE HYDROCHLORIDE
     Indication: BOWEL MOVEMENT IRREGULARITY

REACTIONS (11)
  - Dry mouth [Unknown]
  - Multiple fractures [None]
  - Loss of consciousness [Unknown]
  - Viral infection [Unknown]
  - Somnolence [Unknown]
  - Product use issue [None]
  - Fracture [Unknown]
  - Head injury [Unknown]
  - Dysuria [Unknown]
  - Cervical vertebral fracture [None]
  - Fall [Unknown]

NARRATIVE: CASE EVENT DATE: 20171121
